FAERS Safety Report 19202236 (Version 3)
Quarter: 2021Q4

REPORT INFORMATION
  Report Type: Spontaneous
  Country: US (occurrence: JP)
  Receive Date: 20210430
  Receipt Date: 20211025
  Transmission Date: 20220303
  Serious: Yes (Hospitalization, Other)
  Sender: FDA-Public Use
  Company Number: US-CELGENE-JPN-20210406722

PATIENT
  Age: 69 Year
  Sex: Male
  Weight: 44 kg

DRUGS (8)
  1. ABRAXANE [Suspect]
     Active Substance: PACLITAXEL
     Indication: Adenocarcinoma pancreas
     Dosage: 180 MILLIGRAM
     Route: 041
     Dates: start: 20210407, end: 20210407
  2. GEMCITABINE [Suspect]
     Active Substance: GEMCITABINE
     Indication: Adenocarcinoma pancreas
     Dosage: 1500 MILLIGRAM
     Route: 041
     Dates: start: 20210407, end: 20210407
  3. FLURBIPROFEN AXETIL [Suspect]
     Active Substance: FLURBIPROFEN AXETIL
     Indication: Pyrexia
     Route: 041
     Dates: start: 20210408
  4. URSODIOL [Suspect]
     Active Substance: URSODIOL
     Indication: Jaundice cholestatic
     Dosage: 300 MILLIGRAM
     Route: 048
     Dates: start: 20210407, end: 20210423
  5. TAZOBACTAM [Suspect]
     Active Substance: TAZOBACTAM
     Indication: Cholangitis
     Route: 041
     Dates: start: 20210408
  6. MEROPENEM [Concomitant]
     Active Substance: MEROPENEM
     Indication: Infection
     Route: 041
     Dates: start: 20210415, end: 20210417
  7. LEVOFLOXACIN [Concomitant]
     Active Substance: LEVOFLOXACIN
     Indication: Infection
     Route: 041
     Dates: start: 20210417, end: 20210421
  8. LASIX [Concomitant]
     Active Substance: FUROSEMIDE
     Indication: Diuretic therapy
     Route: 041
     Dates: start: 20210417, end: 20210425

REACTIONS (5)
  - Acute kidney injury [Recovered/Resolved with Sequelae]
  - Cholangitis [Unknown]
  - Urinary tract infection [Unknown]
  - Pyrexia [Recovering/Resolving]
  - Decreased appetite [Unknown]

NARRATIVE: CASE EVENT DATE: 20210408
